FAERS Safety Report 5275307-9 (Version None)
Quarter: 2007Q1

REPORT INFORMATION
  Report Type: 
  Country: None (occurrence: None)
  Receive Date: 20070322
  Receipt Date: 20070322
  Transmission Date: 20070707
  Serious: Yes (Hospitalization)
  Sender: FDA-Public Use
  Company Number: None

PATIENT
  Sex: Female
  Weight: 80 kg

DRUGS (3)
  1. CISPLATIN [Suspect]
     Dosage: 72 MG
     Dates: end: 20070313
  2. IRON [Concomitant]
  3. PROMETHAZINE [Concomitant]

REACTIONS (2)
  - SEPTIC SHOCK [None]
  - STAPHYLOCOCCAL SEPSIS [None]
